FAERS Safety Report 10067014 (Version 2)
Quarter: 2014Q2

REPORT INFORMATION
  Report Type: Spontaneous
  Country: VN (occurrence: VN)
  Receive Date: 20140409
  Receipt Date: 20140527
  Transmission Date: 20141212
  Serious: Yes (Death)
  Sender: FDA-Public Use
  Company Number: VN-ROCHE-1379262

PATIENT
  Age: 77 Year
  Sex: Male

DRUGS (4)
  1. HERCEPTIN [Suspect]
     Indication: GASTRIC CANCER
     Route: 065
     Dates: start: 201209
  2. XELODA [Suspect]
     Indication: GASTRIC CANCER
     Route: 065
     Dates: start: 201209
  3. OXALIPLATIN [Suspect]
     Indication: GASTRIC CANCER
     Route: 065
     Dates: start: 201209
  4. CISPLATIN [Suspect]
     Indication: GASTRIC CANCER
     Route: 065
     Dates: start: 201307

REACTIONS (2)
  - Influenza [Fatal]
  - Myalgia [Unknown]
